FAERS Safety Report 11116829 (Version 1)
Quarter: 2015Q2

REPORT INFORMATION
  Report Type: Spontaneous
  Country: US (occurrence: US)
  Receive Date: 20150515
  Receipt Date: 20150515
  Transmission Date: 20150821
  Serious: Yes (Other)
  Sender: FDA-Public Use
  Company Number: US-TAKEDA-2015TUS006419

PATIENT
  Age: 64 Year
  Sex: Male

DRUGS (2)
  1. INSULIN THERAPY [Concomitant]
     Indication: DIABETES MELLITUS
  2. BRINTELLIX [Suspect]
     Active Substance: VORTIOXETINE HYDROBROMIDE
     Indication: MAJOR DEPRESSION
     Dosage: 10 MG (SAMPLES), QD
     Route: 048

REACTIONS (1)
  - Suicidal ideation [Unknown]
